FAERS Safety Report 7944371-8 (Version None)
Quarter: 2011Q4

REPORT INFORMATION
  Report Type: 
  Country: None (occurrence: None)
  Receive Date: 20111129
  Receipt Date: 20111122
  Transmission Date: 20120403
  Serious: No
  Sender: FDA-Public Use
  Company Number: US-BIOGENIDEC-2011BI044618

PATIENT
  Sex: Female

DRUGS (5)
  1. TYSABRI [Suspect]
     Route: 042
     Dates: start: 20050101
  2. AVONEX [Concomitant]
     Route: 030
  3. TYSABRI [Suspect]
     Indication: MULTIPLE SCLEROSIS
     Route: 042
     Dates: start: 20090705, end: 20110501
  4. AVONEX [Concomitant]
     Indication: MULTIPLE SCLEROSIS
     Route: 030
     Dates: start: 19990520
  5. TYSABRI [Suspect]
     Route: 042
     Dates: start: 20070305, end: 20081026

REACTIONS (3)
  - ANKLE FRACTURE [None]
  - WOUND [None]
  - FALL [None]
